FAERS Safety Report 6566016-4 (Version None)
Quarter: 2010Q1

REPORT INFORMATION
  Report Type: 
  Country: None (occurrence: None)
  Receive Date: 20100129
  Receipt Date: 20100129
  Transmission Date: 20100710
  Serious: No
  Sender: FDA-Public Use
  Company Number: None

PATIENT
  Age: 50 Year
  Sex: Male
  Weight: 79.9 kg

DRUGS (7)
  1. SIMVASTATIN [Suspect]
     Dosage: 20MG HS
     Dates: start: 20090625, end: 20091006
  2. CITALOPRAM HYDROBROMIDE [Suspect]
     Dosage: 40 MG DAILY
     Dates: start: 20090703, end: 20090924
  3. ARIPIPRAZOLE [Concomitant]
  4. DIVALPROEX SODIUM [Concomitant]
  5. FLUPHENAZINE [Concomitant]
  6. GLIPIZIDE [Concomitant]
  7. METFORMIN HYDROCHLORIDE [Suspect]

REACTIONS (2)
  - ALANINE AMINOTRANSFERASE INCREASED [None]
  - ASPARTATE AMINOTRANSFERASE INCREASED [None]
